FAERS Safety Report 21405018 (Version 1)
Quarter: 2022Q4

REPORT INFORMATION
  Report Type: Other
  Country: CA (occurrence: CA)
  Receive Date: 20221004
  Receipt Date: 20221004
  Transmission Date: 20230112
  Serious: Yes (Other)
  Sender: FDA-Public Use
  Company Number: CA-APOTEX-2022AP013681

PATIENT
  Age: 38 Year
  Sex: Female

DRUGS (2)
  1. RISPERIDONE [Suspect]
     Active Substance: RISPERIDONE
     Indication: Product used for unknown indication
     Dosage: 0.5 MILLIGRAM
     Route: 065
  2. MAYZENT [Suspect]
     Active Substance: SIPONIMOD
     Indication: Secondary progressive multiple sclerosis
     Dosage: UNK
     Route: 048

REACTIONS (7)
  - Epilepsy [Unknown]
  - Skin hyperpigmentation [Unknown]
  - Gait disturbance [Unknown]
  - Loss of consciousness [Unknown]
  - Dyspnoea [Unknown]
  - Fall [Unknown]
  - White blood cell count decreased [Unknown]
